FAERS Safety Report 8038060-1 (Version None)
Quarter: 2012Q1

REPORT INFORMATION
  Report Type: 
  Country: None (occurrence: None)
  Receive Date: 20120111
  Receipt Date: 20120110
  Transmission Date: 20120608
  Serious: Yes (Hospitalization)
  Sender: FDA-Public Use
  Company Number: DE-MERCK-1112DEU00018

PATIENT
  Age: 20 Year
  Sex: Female

DRUGS (2)
  1. SINGULAIR [Suspect]
     Indication: CYSTIC FIBROSIS
     Route: 048
     Dates: start: 20010101, end: 20110701
  2. SINGULAIR [Suspect]
     Route: 048
     Dates: start: 20110701

REACTIONS (7)
  - FATIGUE [None]
  - PALPITATIONS [None]
  - ACUTE PSYCHOSIS [None]
  - DYSPHAGIA [None]
  - RESTLESSNESS [None]
  - PANIC ATTACK [None]
  - OFF LABEL USE [None]
